FAERS Safety Report 19903391 (Version 2)
Quarter: 2021Q4

REPORT INFORMATION
  Report Type: Spontaneous
  Country: IN (occurrence: IN)
  Receive Date: 20211001
  Receipt Date: 20211115
  Transmission Date: 20220303
  Serious: Yes (Hospitalization, Other)
  Sender: FDA-Public Use
  Company Number: IN-CIPLA LTD.-2021IN06485

PATIENT

DRUGS (9)
  1. OLANZAPINE [Suspect]
     Active Substance: OLANZAPINE
     Indication: Mania
     Dosage: 5 MG
     Route: 065
  2. OLANZAPINE [Suspect]
     Active Substance: OLANZAPINE
     Indication: Psychotic symptom
  3. ACYCLOVIR [Concomitant]
     Active Substance: ACYCLOVIR
     Indication: Encephalitis viral
     Dosage: UNK
     Route: 065
  4. VALPROATE SODIUM [Concomitant]
     Active Substance: VALPROATE SODIUM
     Indication: Mania
     Dosage: 1000 MG
     Route: 065
  5. VALPROATE SODIUM [Concomitant]
     Active Substance: VALPROATE SODIUM
     Indication: Psychotic symptom
  6. LORAZEPAM [Concomitant]
     Active Substance: LORAZEPAM
     Indication: Mania
     Dosage: 4 MG
     Route: 065
  7. LORAZEPAM [Concomitant]
     Active Substance: LORAZEPAM
     Indication: Psychotic symptom
     Dosage: UNK, INJECTION
     Route: 065
  8. HALOPERIDOL [Concomitant]
     Active Substance: HALOPERIDOL
     Indication: Mania
     Dosage: 5 MG
     Route: 030
  9. HALOPERIDOL [Concomitant]
     Active Substance: HALOPERIDOL
     Indication: Psychotic symptom

REACTIONS (4)
  - Encephalitis autoimmune [Recovered/Resolved]
  - Malignant catatonia [Recovered/Resolved]
  - Abnormal behaviour [Recovered/Resolved]
  - Memory impairment [Recovered/Resolved]
